FAERS Safety Report 23838047 (Version 1)
Quarter: 2024Q2

REPORT INFORMATION
  Report Type: Report from Study
  Country: US (occurrence: US)
  Receive Date: 20240509
  Receipt Date: 20240509
  Transmission Date: 20240715
  Serious: Yes (Hospitalization)
  Sender: FDA-Public Use
  Company Number: US-JNJFOC-20231262896

PATIENT
  Age: 61 Year
  Sex: Female

DRUGS (1)
  1. TALVEY [Suspect]
     Active Substance: TALQUETAMAB-TGVS
     Indication: Plasma cell myeloma
     Route: 058
     Dates: start: 20231031, end: 20231218

REACTIONS (7)
  - Stem cell transplant [Recovered/Resolved]
  - Fatigue [Recovering/Resolving]
  - Skin exfoliation [Not Recovered/Not Resolved]
  - Ageusia [Not Recovered/Not Resolved]
  - Onycholysis [Not Recovered/Not Resolved]
  - Nausea [Not Recovered/Not Resolved]
  - Diarrhoea [Not Recovered/Not Resolved]

NARRATIVE: CASE EVENT DATE: 20231206
